FAERS Safety Report 5751086-3 (Version None)
Quarter: 2008Q2

REPORT INFORMATION
  Report Type: 
  Country: None (occurrence: None)
  Receive Date: 20080528
  Receipt Date: 20080515
  Transmission Date: 20081010
  Serious: Yes (Other)
  Sender: FDA-Public Use
  Company Number: GB-WATSON-2008-03028

PATIENT

DRUGS (2)
  1. KENTERA (WATSON LABORATORIES) [Suspect]
     Indication: URGE INCONTINENCE
     Dosage: 1 DF
     Route: 061
     Dates: start: 20071201, end: 20080301
  2. TOLTERODINE TARTRATE [Suspect]
     Indication: INCONTINENCE
     Dosage: 2 MG
     Route: 048

REACTIONS (5)
  - DISCOMFORT [None]
  - PAIN [None]
  - SKIN DISORDER [None]
  - SKIN HAEMORRHAGE [None]
  - SKIN INFLAMMATION [None]
